FAERS Safety Report 19878437 (Version 2)
Quarter: 2022Q1

REPORT INFORMATION
  Report Type: Report from Study
  Country: US (occurrence: US)
  Receive Date: 20210923
  Receipt Date: 20220120
  Transmission Date: 20220424
  Serious: No
  Sender: FDA-Public Use
  Company Number: US-NOVARTISTESTPH-NVSC2021US215656

PATIENT
  Age: 73 Year
  Sex: Male

DRUGS (1)
  1. ENTRESTO [Suspect]
     Active Substance: SACUBITRIL\VALSARTAN
     Indication: Cardiac failure
     Dosage: 49.51 MG, BID
     Route: 048
     Dates: start: 20210517

REACTIONS (8)
  - Blood glucose decreased [Recovered/Resolved]
  - Feeling abnormal [Recovered/Resolved]
  - Product dose omission issue [Recovered/Resolved]
  - Back disorder [Recovering/Resolving]
  - Joint injury [Recovering/Resolving]
  - Somnolence [Recovered/Resolved]
  - Arthralgia [Recovering/Resolving]
  - Dysstasia [Recovered/Resolved]

NARRATIVE: CASE EVENT DATE: 20210901
